FAERS Safety Report 10190150 (Version 1)
Quarter: 2014Q2

REPORT INFORMATION
  Report Type: Spontaneous
  Country: DE (occurrence: DE)
  Receive Date: 20140522
  Receipt Date: 20140522
  Transmission Date: 20141212
  Serious: Yes (Hospitalization)
  Sender: FDA-Public Use
  Company Number: DE-ELI_LILLY_AND_COMPANY-DE201405003678

PATIENT
  Sex: Female

DRUGS (2)
  1. ZYPREXA [Suspect]
     Indication: PRODUCT USED FOR UNKNOWN INDICATION
     Dosage: 7.5MG, UNK
     Route: 048
  2. ZYPREXA [Suspect]
     Dosage: 15MG, UNK

REACTIONS (2)
  - Mental disorder [Unknown]
  - Exposure during pregnancy [Not Recovered/Not Resolved]
